FAERS Safety Report 5609810-6 (Version None)
Quarter: 2008Q1

REPORT INFORMATION
  Report Type: 
  Country: None (occurrence: None)
  Receive Date: 20080131
  Receipt Date: 20080114
  Transmission Date: 20080703
  Serious: No
  Sender: FDA-Public Use
  Company Number: US-BAYER-200714874NA

PATIENT
  Age: 48 Year
  Sex: Female
  Weight: 54 kg

DRUGS (1)
  1. YAZ [Suspect]
     Indication: HORMONE REPLACEMENT THERAPY
     Dosage: TOTAL DAILY DOSE: 1 DF
     Route: 048
     Dates: start: 20070301, end: 20071020

REACTIONS (3)
  - BREAST SWELLING [None]
  - OEDEMA PERIPHERAL [None]
  - WEIGHT INCREASED [None]
